FAERS Safety Report 12314215 (Version 4)
Quarter: 2017Q4

REPORT INFORMATION
  Report Type: Spontaneous
  Country: ES (occurrence: ES)
  Receive Date: 20160428
  Receipt Date: 20171106
  Transmission Date: 20180320
  Serious: Yes (Other)
  Sender: FDA-Public Use
  Company Number: ES-ABBVIE-16P-144-1615528-00

PATIENT
  Age: 31 Year
  Sex: Female

DRUGS (17)
  1. LEVETIRACETAM. [Concomitant]
     Active Substance: LEVETIRACETAM
     Indication: PRODUCT USED FOR UNKNOWN INDICATION
  2. VALPROIC ACID. [Suspect]
     Active Substance: VALPROIC ACID
     Route: 065
  3. LETROZOLE. [Concomitant]
     Active Substance: LETROZOLE
     Indication: PRODUCT USED FOR UNKNOWN INDICATION
     Dates: start: 201110
  4. DOXORUBICIN [Concomitant]
     Active Substance: DOXORUBICIN
     Indication: PRODUCT USED FOR UNKNOWN INDICATION
     Dates: start: 201110
  5. LAPATINIB [Suspect]
     Active Substance: LAPATINIB
     Indication: HER-2 POSITIVE BREAST CANCER
     Route: 065
  6. LAPATINIB [Suspect]
     Active Substance: LAPATINIB
     Route: 065
  7. TRASTUZUMAB. [Concomitant]
     Active Substance: TRASTUZUMAB
     Dates: start: 201006
  8. CAPECITABINE. [Suspect]
     Active Substance: CAPECITABINE
     Indication: HER-2 POSITIVE BREAST CANCER
     Route: 065
  9. VALPROIC ACID. [Suspect]
     Active Substance: VALPROIC ACID
     Indication: SEIZURE
     Route: 065
     Dates: start: 201302
  10. DEXAMETHASONE SALT [Suspect]
     Active Substance: DEXAMETHASONE
     Indication: PERITUMOURAL OEDEMA
     Route: 065
     Dates: start: 201302
  11. DOCETAXEL. [Concomitant]
     Active Substance: DOCETAXEL
     Indication: PRODUCT USED FOR UNKNOWN INDICATION
     Dates: start: 201006
  12. TAMOXIFEN [Concomitant]
     Active Substance: TAMOXIFEN
     Indication: PRODUCT USED FOR UNKNOWN INDICATION
  13. VALPROIC ACID. [Suspect]
     Active Substance: VALPROIC ACID
     Route: 065
  14. TRASTUZUMAB. [Concomitant]
     Active Substance: TRASTUZUMAB
     Indication: PRODUCT USED FOR UNKNOWN INDICATION
     Dates: start: 201110
  15. LAPATINIB [Suspect]
     Active Substance: LAPATINIB
     Route: 065
  16. PACLITAXEL. [Concomitant]
     Active Substance: PACLITAXEL
     Indication: PRODUCT USED FOR UNKNOWN INDICATION
     Dates: start: 201110
  17. CAPECITABINE. [Suspect]
     Active Substance: CAPECITABINE
     Route: 065

REACTIONS (14)
  - Mucosal inflammation [Recovering/Resolving]
  - Leukocytosis [Recovering/Resolving]
  - Gastrointestinal toxicity [Recovering/Resolving]
  - Vomiting [Recovering/Resolving]
  - Drug administration error [Recovering/Resolving]
  - Oropharyngeal candidiasis [Recovering/Resolving]
  - Nausea [Recovering/Resolving]
  - Drug tolerance decreased [Recovering/Resolving]
  - Hepatic enzyme increased [Recovering/Resolving]
  - Hepatotoxicity [Recovering/Resolving]
  - Jaundice [Recovering/Resolving]
  - Diarrhoea [Recovering/Resolving]
  - Asthenia [Recovering/Resolving]
  - Tremor [Recovering/Resolving]
